FAERS Safety Report 10673766 (Version 1)
Quarter: 2014Q4

REPORT INFORMATION
  Report Type: Spontaneous
  Country: DE (occurrence: None)
  Receive Date: 20141222
  Receipt Date: 20141222
  Transmission Date: 20150529
  Serious: Yes (Other)
  Sender: FDA-Public Use
  Company Number: 2014JUB00215

PATIENT
  Age: 4 Year
  Sex: Female

DRUGS (3)
  1. ITRACONAZOLE. [Concomitant]
     Active Substance: ITRACONAZOLE
  2. PREDNISONE (PREDNISONE) UNKNOWN [Suspect]
     Active Substance: PREDNISONE
     Indication: BRONCHOPULMONARY ASPERGILLOSIS ALLERGIC
     Route: 048
  3. OMALIZUMAB [Concomitant]
     Active Substance: OMALIZUMAB

REACTIONS (5)
  - Diabetes mellitus [None]
  - Septic shock [None]
  - Immunosuppression [None]
  - Clostridium difficile infection [None]
  - Bacterial disease carrier [None]
